FAERS Safety Report 21584375 (Version 4)
Quarter: 2023Q1

REPORT INFORMATION
  Report Type: Report from Study
  Country: GB (occurrence: GB)
  Receive Date: 20221111
  Receipt Date: 20230124
  Transmission Date: 20230417
  Serious: Yes (Hospitalization, Other)
  Sender: FDA-Public Use
  Company Number: GB-ABBVIE-4184644

PATIENT
  Age: 66 Year
  Sex: Male

DRUGS (4)
  1. CARBIDOPA\LEVODOPA [Suspect]
     Active Substance: CARBIDOPA\LEVODOPA
     Indication: Parkinson^s disease
     Dosage: DUODOPA 20MGS/5MGS
     Route: 050
  2. CARBIDOPA\LEVODOPA [Suspect]
     Active Substance: CARBIDOPA\LEVODOPA
     Dosage: 08:00-22:00 CR OF 3.5 MLS/HR (1ST PUMP). NIGHT TIME DOSE 23:00-08:00 OF 2.5 MLS 2ND PUMP
     Route: 050
  3. CARBIDOPA\LEVODOPA [Suspect]
     Active Substance: CARBIDOPA\LEVODOPA
     Dosage: DUODOPA 20MGS/5MGS; 100ML CASSETTE
     Route: 050
  4. DOPAMINE [Suspect]
     Active Substance: DOPAMINE HYDROCHLORIDE
     Indication: Product used for unknown indication
     Route: 065
     Dates: start: 2022

REACTIONS (10)
  - Hospitalisation [Unknown]
  - Post procedural complication [Unknown]
  - Therapeutic procedure [Unknown]
  - Respiratory disorder [Unknown]
  - Device occlusion [Not Recovered/Not Resolved]
  - Abdominal pain [Not Recovered/Not Resolved]
  - Aspiration [Unknown]
  - Adverse drug reaction [Unknown]
  - Extubation [Unknown]
  - Intestinal obstruction [Unknown]

NARRATIVE: CASE EVENT DATE: 20220101
